FAERS Safety Report 12291095 (Version 3)
Quarter: 2016Q4

REPORT INFORMATION
  Report Type: Spontaneous
  Country: US (occurrence: US)
  Receive Date: 20160421
  Receipt Date: 20161024
  Transmission Date: 20170207
  Serious: Yes (Other)
  Sender: FDA-Public Use
  Company Number: US-JNJFOC-20160419343

PATIENT
  Age: 80 Year
  Sex: Male
  Weight: 101 kg

DRUGS (4)
  1. IMBRUVICA [Suspect]
     Active Substance: IBRUTINIB
     Indication: NON-HODGKIN^S LYMPHOMA
     Route: 048
     Dates: start: 20160315
  2. IMBRUVICA [Suspect]
     Active Substance: IBRUTINIB
     Indication: CHRONIC LYMPHOCYTIC LEUKAEMIA
     Route: 048
     Dates: start: 201507, end: 2015
  3. IMBRUVICA [Suspect]
     Active Substance: IBRUTINIB
     Indication: CHRONIC LYMPHOCYTIC LEUKAEMIA
     Route: 048
     Dates: start: 20160315
  4. IMBRUVICA [Suspect]
     Active Substance: IBRUTINIB
     Indication: NON-HODGKIN^S LYMPHOMA
     Route: 048
     Dates: start: 201507, end: 2015

REACTIONS (7)
  - Haemorrhage [Unknown]
  - Rash macular [Not Recovered/Not Resolved]
  - Kidney infection [Unknown]
  - Diarrhoea [Recovered/Resolved]
  - Renal haemorrhage [Recovered/Resolved]
  - Urinary tract obstruction [Recovered/Resolved]
  - Skin injury [Unknown]

NARRATIVE: CASE EVENT DATE: 2015
